FAERS Safety Report 6748121-2 (Version None)
Quarter: 2010Q2

REPORT INFORMATION
  Report Type: 
  Country: None (occurrence: None)
  Receive Date: 20100531
  Receipt Date: 20100526
  Transmission Date: 20101027
  Serious: Yes (Death, Hospitalization)
  Sender: FDA-Public Use
  Company Number: JP-BRISTOL-MYERS SQUIBB COMPANY-15115090

PATIENT
  Age: 93 Year
  Sex: Female

DRUGS (2)
  1. TAXOL [Suspect]
     Indication: BREAST CANCER
     Route: 041
  2. ARIMIDEX [Suspect]

REACTIONS (2)
  - GRANULOCYTE COUNT DECREASED [None]
  - RENAL FAILURE ACUTE [None]
